FAERS Safety Report 9904402 (Version 3)
Quarter: 2014Q1

REPORT INFORMATION
  Report Type: Report from Study
  Country: JP (occurrence: JP)
  Receive Date: 20140218
  Receipt Date: 20140227
  Transmission Date: 20141002
  Serious: Yes (Other)
  Sender: FDA-Public Use
  Company Number: JP-009507513-1202USA00127

PATIENT
  Age: 61 Year
  Sex: Male

DRUGS (6)
  1. TAPROS [Suspect]
     Indication: OPEN ANGLE GLAUCOMA
     Dosage: 1 GTT, QD
     Route: 047
     Dates: start: 20091208, end: 20100207
  2. TAPROS [Suspect]
     Dosage: 2 GTT, QD
     Route: 047
     Dates: start: 20100208, end: 20100330
  3. TAPROS [Suspect]
     Dosage: 2 GTT, QD
     Route: 047
     Dates: start: 20100402, end: 20110422
  4. TRUSOPT OPHTHALMIC SOLUTION 1% [Suspect]
     Dosage: UNK UNK, TID
     Route: 047
     Dates: start: 20100315, end: 20100924
  5. TRUSOPT OPHTHALMIC SOLUTION 1% [Suspect]
     Dosage: UNK UNK, QD
     Route: 047
     Dates: start: 20110412
  6. TIMOLOL MALEATE [Suspect]
     Dosage: 4 GTT, QD
     Route: 047
     Dates: start: 20100402

REACTIONS (5)
  - Visual field defect [Not Recovered/Not Resolved]
  - Ocular hypertension [Unknown]
  - Visual acuity reduced [Unknown]
  - Cataract [Unknown]
  - Intraocular pressure increased [Unknown]
